FAERS Safety Report 13873108 (Version 1)
Quarter: 2017Q3

REPORT INFORMATION
  Report Type: Spontaneous
  Country: GB (occurrence: GB)
  Receive Date: 20170816
  Receipt Date: 20170816
  Transmission Date: 20171127
  Serious: Yes (Other)
  Sender: FDA-Public Use
  Company Number: GB-JNJFOC-20170809221

PATIENT
  Age: 44 Year
  Sex: Male
  Weight: 47 kg

DRUGS (18)
  1. PARACETAMOL [Suspect]
     Active Substance: ACETAMINOPHEN
     Indication: PRODUCT USED FOR UNKNOWN INDICATION
     Dosage: DOSE 1 (UNIT UNSPECIFIED), CUMULATIVE DOSE TO FIRST REACTION (NO.) 9.0 (UNIT UNSPECIFIED)
     Route: 065
     Dates: start: 20170728
  2. NEFOPAM [Concomitant]
     Active Substance: NEFOPAM
     Indication: PRODUCT USED FOR UNKNOWN INDICATION
     Dosage: DOSE 2 (UNIT UNSPECIFIED), CUMULATIVE DOSE TO FIRST REACTION (NO.) 18.0 (UNIT UNSPECIFIED)
     Route: 065
     Dates: start: 20170728
  3. AMIODARONE [Concomitant]
     Active Substance: AMIODARONE
     Indication: PRODUCT USED FOR UNKNOWN INDICATION
     Dosage: DOSE 1 (UNIT UNSPECIFIED), CUMULATIVE DOSE TO FIRST REACTION (NO.) 528.958333 (UNIT UNSPECIFIED)
     Route: 065
     Dates: start: 20160218
  4. LANSOPRAZOLE. [Concomitant]
     Active Substance: LANSOPRAZOLE
     Indication: PRODUCT USED FOR UNKNOWN INDICATION
     Dosage: DOSE 1 (UNIT UNSPECIFIED), CUMULATIVE DOSE TO FIRST REACTION (NO.) 184.958333 (UNIT UNSPECIFIED)
     Route: 065
     Dates: start: 20170127
  5. METHOTREXATE. [Concomitant]
     Active Substance: METHOTREXATE
     Indication: PRODUCT USED FOR UNKNOWN INDICATION
     Dosage: DOSE 2.5 (UNIT UNSPECIFIED), CUMULATIVE DOSE TO FIRST REACTION (NO.) 536.785714 (UNIT UNSPECIFIED)
     Route: 065
     Dates: start: 20130619
  6. TRIMETHOPRIM. [Concomitant]
     Active Substance: TRIMETHOPRIM
     Indication: PRODUCT USED FOR UNKNOWN INDICATION
     Dosage: DOSE 1 (UNIT UNSPECIFIED), CUMULATIVE DOSE TO FIRST REACTION (NO.) 500.958333 (UNIT UNSPECIFIED),
     Route: 065
     Dates: start: 20160317
  7. PARACETAMOL [Suspect]
     Active Substance: ACETAMINOPHEN
     Route: 065
  8. GABAPENTIN. [Concomitant]
     Active Substance: GABAPENTIN
     Indication: PRODUCT USED FOR UNKNOWN INDICATION
     Dosage: DOSE 1 (UNIT UNSPECIFIED), CUMULATIVE DOSE TO FIRST REACTION (NO.) 9.0 (UNIT UNSPECIFIED)
     Route: 065
     Dates: start: 20170728
  9. LINAGLIPTIN [Concomitant]
     Active Substance: LINAGLIPTIN
     Indication: PRODUCT USED FOR UNKNOWN INDICATION
     Dosage: DOSE 1 (UNIT UNSPECIFIED), CUMULATIVE DOSE TO FIRST REACTION (NO.) 1007.95833 (UNIT UNSPECIFIED)
     Route: 065
     Dates: start: 20141027
  10. ADCAL [Concomitant]
     Active Substance: CALCIUM CARBONATE
     Indication: PRODUCT USED FOR UNKNOWN INDICATION
     Dosage: DOSE 1 (UNIT UNSPECIFIED), CUMULATIVE DOSE TO FIRST REACTION (NO.) 12.0 (UNIT UNSPECIFIED)
     Route: 065
     Dates: start: 20170725
  11. ATORVASTATIN [Concomitant]
     Active Substance: ATORVASTATIN
     Indication: PRODUCT USED FOR UNKNOWN INDICATION
     Dosage: DOSE 1 (UNIT UNSPECIFIED), CUMULATIVE DOSE TO FIRST REACTION (NO.) 6.0 (UNIT UNSPECIFIED)
     Route: 065
     Dates: start: 20170725
  12. METHADONE [Concomitant]
     Active Substance: METHADONE HYDROCHLORIDE
     Indication: PRODUCT USED FOR UNKNOWN INDICATION
     Dosage: USE AS DIRECTED
     Route: 065
     Dates: start: 20130913
  13. ACICLOVIR [Concomitant]
     Active Substance: ACYCLOVIR
     Indication: PRODUCT USED FOR UNKNOWN INDICATION
     Dosage: DOSE 1 (UNIT UNSPECIFIED), CUMULATIVE DOSE TO FIRST REACTION (NO.) 30.0 (UNIT UNSPECIFIED)
     Route: 065
     Dates: start: 20170725
  14. ASPIRIN. [Concomitant]
     Active Substance: ASPIRIN
     Indication: PRODUCT USED FOR UNKNOWN INDICATION
     Dosage: DOSE 1 (UNIT UNSPECIFIED), CUMULATIVE DOSE TO FIRST REACTION (NO.) 748.0 (UNIT UNSPECIFIED)
     Route: 065
     Dates: start: 20150714
  15. HEPATITIS A [Concomitant]
     Indication: PRODUCT USED FOR UNKNOWN INDICATION
     Dosage: DOSE 0.5 (UNIT UNSPECIFIED)
     Route: 065
     Dates: start: 20140221, end: 20140221
  16. DENOSUMAB [Concomitant]
     Active Substance: DENOSUMAB
     Indication: PRODUCT USED FOR UNKNOWN INDICATION
     Dosage: USE AS DIRECTED
     Route: 065
     Dates: start: 20130726
  17. DIAMORPHINE HYDROCHLORIDE [Concomitant]
     Active Substance: DIACETYLMORPHINE HYDROCHLORIDE
     Indication: PRODUCT USED FOR UNKNOWN INDICATION
     Dosage: DOSE 1 (UNIT UNSPECIFIED), AS REQUIRED
     Route: 065
     Dates: start: 20121206
  18. ZEROBASE [Concomitant]
     Indication: PRODUCT USED FOR UNKNOWN INDICATION
     Route: 065
     Dates: start: 20121206

REACTIONS (1)
  - Pruritus generalised [Recovered/Resolved]

NARRATIVE: CASE EVENT DATE: 20170731
